FAERS Safety Report 8825689 (Version 1)
Quarter: 2012Q4

REPORT INFORMATION
  Report Type: 
  Country: CN (occurrence: CN)
  Receive Date: 20121004
  Receipt Date: 20121004
  Transmission Date: 20130627
  Serious: Yes (Other)
  Sender: FDA-Public Use
  Company Number: CN-PFIZER INC-2012239482

PATIENT
  Age: 27 Year
  Sex: Female

DRUGS (1)
  1. CARBOPROST TROMETHAMINE [Suspect]
     Indication: POSTPARTUM HAEMORRHAGE
     Dosage: 250 ug, single
     Route: 030
     Dates: start: 20110209

REACTIONS (1)
  - Anaphylactic shock [Recovered/Resolved]
